FAERS Safety Report 22243900 (Version 1)
Quarter: 2023Q2

REPORT INFORMATION
  Report Type: Spontaneous
  Country: US (occurrence: None)
  Receive Date: 20230420
  Receipt Date: 20230420
  Transmission Date: 20230722
  Serious: Yes (Hospitalization)
  Sender: FDA-Public Use
  Company Number: None

PATIENT
  Sex: Female

DRUGS (2)
  1. OPSUMIT [Suspect]
     Active Substance: MACITENTAN
     Indication: Pulmonary hypertension
     Dosage: 10 MG ONCE DAILY BY MOUTH
     Route: 048
     Dates: start: 20230404
  2. VELETRI [Suspect]
     Active Substance: EPOPROSTENOL

REACTIONS (2)
  - Fall [None]
  - Arthralgia [None]
